FAERS Safety Report 9349842 (Version 1)
Quarter: 2013Q2

REPORT INFORMATION
  Report Type: Spontaneous
  Country: BR (occurrence: BR)
  Receive Date: 20130614
  Receipt Date: 20130614
  Transmission Date: 20140414
  Serious: Yes (Other)
  Sender: FDA-Public Use
  Company Number: BR-ASTRAZENECA-2013SE41950

PATIENT
  Age: 370 Month
  Sex: Female

DRUGS (7)
  1. SYMBICORT TURBUHALER [Suspect]
     Indication: ASTHMA
     Dosage: 160/4.5 MCG FOUR TIMES A DAY
     Route: 055
     Dates: start: 201304
  2. DAMATER [Concomitant]
     Indication: PREGNANCY
  3. PROGESTERONE [Concomitant]
     Indication: PREGNANCY
  4. BUSCOPAN [Concomitant]
     Indication: PREGNANCY
     Dosage: THREE TIMES A DAY
  5. IRON [Concomitant]
     Indication: PREGNANCY
  6. METHYLDOPA [Concomitant]
     Indication: BLOOD PRESSURE FLUCTUATION
     Dosage: FOUR TIMES A DAY
  7. GRACIAL [Concomitant]
     Indication: ORAL CONTRACEPTION

REACTIONS (5)
  - Exposure during pregnancy [Not Recovered/Not Resolved]
  - Placental disorder [Not Recovered/Not Resolved]
  - Tachycardia [Not Recovered/Not Resolved]
  - Nausea [Not Recovered/Not Resolved]
  - Headache [Not Recovered/Not Resolved]
